FAERS Safety Report 18156869 (Version 1)
Quarter: 2020Q3

REPORT INFORMATION
  Report Type: Spontaneous
  Country: US (occurrence: US)
  Receive Date: 20200817
  Receipt Date: 20200817
  Transmission Date: 20201103
  Serious: Yes (Hospitalization, Disabling)
  Sender: FDA-Public Use
  Company Number: None

PATIENT
  Age: 49 Year
  Sex: Male
  Weight: 138.15 kg

DRUGS (4)
  1. KNEE BRACE [Concomitant]
  2. PROPOFOL. [Suspect]
     Active Substance: PROPOFOL
     Indication: INDUCTION OF ANAESTHESIA
     Dosage: ?          QUANTITY:1 INJECTION(S);?
     Route: 058
     Dates: start: 20200812, end: 20200812
  3. HCTZ [Concomitant]
     Active Substance: HYDROCHLOROTHIAZIDE
  4. WRIST BRACE [Concomitant]

REACTIONS (4)
  - Imprisonment [None]
  - Feeling abnormal [None]
  - Aggression [None]
  - Confusional state [None]

NARRATIVE: CASE EVENT DATE: 20200812
